FAERS Safety Report 20080842 (Version 2)
Quarter: 2021Q4

REPORT INFORMATION
  Report Type: Spontaneous
  Country: US (occurrence: US)
  Receive Date: 20211117
  Receipt Date: 20211217
  Transmission Date: 20220303
  Serious: Yes (Other)
  Sender: FDA-Public Use
  Company Number: US-CELGENE-USA-20211102531

PATIENT
  Sex: Male

DRUGS (5)
  1. THALOMID [Suspect]
     Active Substance: THALIDOMIDE
     Indication: Plasma cell myeloma
     Dosage: 200 MG
     Route: 048
     Dates: start: 201403
  2. THALOMID [Suspect]
     Active Substance: THALIDOMIDE
     Dosage: 100 MG
     Route: 048
     Dates: start: 20160607
  3. THALOMID [Suspect]
     Active Substance: THALIDOMIDE
     Dosage: 200 MG
     Route: 048
     Dates: start: 20180312
  4. THALOMID [Suspect]
     Active Substance: THALIDOMIDE
     Dosage: 100 MG
     Route: 048
     Dates: start: 202108
  5. THALOMID [Suspect]
     Active Substance: THALIDOMIDE
     Dosage: 50 MG
     Route: 048
     Dates: start: 202110

REACTIONS (4)
  - Neuropathy peripheral [Unknown]
  - Urinary incontinence [Unknown]
  - Anal incontinence [Unknown]
  - Lethargy [Unknown]
